FAERS Safety Report 6887014-7 (Version None)
Quarter: 2010Q3

REPORT INFORMATION
  Report Type: 
  Country: None (occurrence: None)
  Receive Date: 20100708
  Receipt Date: 20100429
  Transmission Date: 20110219
  Serious: Yes (Other)
  Sender: FDA-Public Use
  Company Number: 2010030499

PATIENT
  Age: 30 Year
  Sex: Male
  Weight: 108 kg

DRUGS (1)
  1. CHANTIX [Suspect]
     Indication: SMOKING CESSATION THERAPY
     Dosage: ORAL
     Route: 048
     Dates: start: 20100218

REACTIONS (5)
  - DIZZINESS [None]
  - HEADACHE [None]
  - MYALGIA [None]
  - PAIN [None]
  - VISUAL FIELD DEFECT [None]
